FAERS Safety Report 18518683 (Version 1)
Quarter: 2020Q4

REPORT INFORMATION
  Report Type: Not Available
  Country: None (occurrence: None)
  Receive Date: 20201118
  Receipt Date: 20201118
  Transmission Date: 20210114
  Serious: No
  Sender: FDA-Public Use
  Company Number: US-AKORN PHARMACEUTICALS-2020AKN01175

PATIENT
  Age: 39 Year
  Sex: Female

DRUGS (1)
  1. RIFAMPIN. [Suspect]
     Active Substance: RIFAMPIN

REACTIONS (2)
  - Headache [Unknown]
  - Tachycardia [Unknown]
